FAERS Safety Report 8259641-6 (Version None)
Quarter: 2012Q2

REPORT INFORMATION
  Report Type: 
  Country: None (occurrence: None)
  Receive Date: 20120404
  Receipt Date: 20120402
  Transmission Date: 20120825
  Serious: Yes (Death, Hospitalization, Other)
  Sender: FDA-Public Use
  Company Number: PHHY2012BR028452

PATIENT
  Sex: Female

DRUGS (4)
  1. METILDOPA [Concomitant]
     Indication: HYPERTENSION
     Dosage: 3 DF, DAILY
  2. CLONAZEPAM [Concomitant]
     Indication: SEDATIVE THERAPY
     Dosage: 1 DF, AT NIGT
  3. DIOVAN [Suspect]
     Indication: HYPERTENSION
     Dosage: 1 DF, DAILY (320 MG)
  4. ATENOLOL [Concomitant]
     Indication: HYPERTENSION
     Dosage: 1 DF, DAILY

REACTIONS (4)
  - BLOOD PRESSURE ABNORMAL [None]
  - CARDIOGENIC SHOCK [None]
  - MYOCARDIAL INFARCTION [None]
  - ABDOMINAL PAIN UPPER [None]
